FAERS Safety Report 11245209 (Version 2)
Quarter: 2015Q3

REPORT INFORMATION
  Report Type: Spontaneous
  Country: US (occurrence: US)
  Receive Date: 20150707
  Receipt Date: 20150820
  Transmission Date: 20151125
  Serious: No
  Sender: FDA-Public Use
  Company Number: US-PFIZER INC-2015221628

PATIENT
  Age: 67 Year
  Sex: Female

DRUGS (1)
  1. RELPAX [Suspect]
     Active Substance: ELETRIPTAN HYDROBROMIDE
     Indication: MIGRAINE
     Dosage: 40 MG, AS NEEDED (WHEN I HAVE A MIGRAINE)
     Dates: end: 20150701

REACTIONS (4)
  - Neck injury [Unknown]
  - Disease progression [Unknown]
  - Nausea [Unknown]
  - Malaise [Unknown]
